FAERS Safety Report 13834851 (Version 1)
Quarter: 2017Q3

REPORT INFORMATION
  Report Type: Spontaneous
  Country: US (occurrence: US)
  Receive Date: 20170804
  Receipt Date: 20170804
  Transmission Date: 20171127
  Serious: No
  Sender: FDA-Public Use
  Company Number: US-SUN PHARMACEUTICAL INDUSTRIES LTD-2017US-145907

PATIENT
  Sex: Female

DRUGS (1)
  1. BROMSITE 0.075% [Suspect]
     Active Substance: BROMFENAC SODIUM
     Indication: POSTOPERATIVE CARE
     Dosage: UNK
     Route: 065
     Dates: start: 2017

REACTIONS (1)
  - Drug prescribing error [Unknown]

NARRATIVE: CASE EVENT DATE: 2017
